FAERS Safety Report 6983853-2 (Version None)
Quarter: 2010Q3

REPORT INFORMATION
  Report Type: 
  Country: None (occurrence: None)
  Receive Date: 20100914
  Receipt Date: 20090420
  Transmission Date: 20110219
  Serious: No
  Sender: FDA-Public Use
  Company Number: US-WYE-H08629009

PATIENT
  Age: 64 Year
  Sex: Female
  Weight: 55.39 kg

DRUGS (2)
  1. ADVIL PM [Suspect]
     Indication: ANALGESIC THERAPY
     Dosage: 2 CAPLETS X 1
     Route: 048
     Dates: start: 20090301, end: 20090301
  2. ADVIL PM [Suspect]
     Indication: INSOMNIA

REACTIONS (2)
  - ASTHENOPIA [None]
  - DRUG INEFFECTIVE [None]
